FAERS Safety Report 7934105-5 (Version None)
Quarter: 2011Q4

REPORT INFORMATION
  Report Type: 
  Country: None (occurrence: None)
  Receive Date: 20111122
  Receipt Date: 20111110
  Transmission Date: 20120403
  Serious: No
  Sender: FDA-Public Use
  Company Number: US-B.I. PHARMACEUTICALS,INC./RIDGEFIELD-2011-BP-23873BP

PATIENT
  Age: 74 Year
  Sex: Male

DRUGS (13)
  1. PRADAXA [Suspect]
     Indication: ATRIAL FIBRILLATION
     Dosage: 300 MG
     Route: 048
     Dates: start: 20110801
  2. DYAZIDE [Concomitant]
  3. PROAIR HFA [Concomitant]
  4. APRESOLINE [Concomitant]
     Dosage: 50 MG
  5. HYTRIN [Concomitant]
     Dosage: 4 MG
  6. CAPOTEN [Concomitant]
     Dosage: 4 MG
  7. ALLEGRA [Concomitant]
     Dosage: 120 MG
  8. SINGULAIR [Concomitant]
     Dosage: 10 MG
  9. COREG [Concomitant]
     Dosage: 12.5 MG
  10. PRADAXA [Suspect]
     Indication: ANTICOAGULANT THERAPY
  11. ZOCOR [Concomitant]
     Dosage: 20 MG
  12. FLONASE [Concomitant]
     Route: 045
  13. XALATAN [Concomitant]
     Route: 031

REACTIONS (5)
  - DIARRHOEA [None]
  - FAECAL INCONTINENCE [None]
  - GASTROINTESTINAL SOUNDS ABNORMAL [None]
  - CONSTIPATION [None]
  - ABDOMINAL DISCOMFORT [None]
